FAERS Safety Report 8150890-4 (Version None)
Quarter: 2012Q1

REPORT INFORMATION
  Report Type: 
  Country: None (occurrence: None)
  Receive Date: 20120220
  Receipt Date: 20120215
  Transmission Date: 20120608
  Serious: Yes (Death)
  Sender: FDA-Public Use
  Company Number: PHHY2012IT013805

PATIENT
  Age: 37 Year
  Sex: Male

DRUGS (1)
  1. EXJADE [Suspect]
     Indication: IRON OVERLOAD
     Dosage: UNK UKN, UNK
     Dates: start: 20080101

REACTIONS (3)
  - NEOPLASM PROGRESSION [None]
  - COMPLICATIONS OF BONE MARROW TRANSPLANT [None]
  - NEOPLASM MALIGNANT [None]
